FAERS Safety Report 6415097-7 (Version None)
Quarter: 2009Q4

REPORT INFORMATION
  Report Type: 
  Country: None (occurrence: None)
  Receive Date: 20091022
  Receipt Date: 20091008
  Transmission Date: 20100525
  Serious: Yes (Death)
  Sender: FDA-Public Use
  Company Number: CLOF-1000681

PATIENT
  Age: 75 Year
  Sex: Male
  Weight: 81 kg

DRUGS (11)
  1. EVOLTRA        (CLOFARABINE) [Suspect]
     Indication: ACUTE MYELOID LEUKAEMIA
     Dosage: 40 MG, QDX5, INTRAVENOUS
     Route: 042
     Dates: start: 20090827, end: 20090827
  2. DEXAMETHASONE TAB [Concomitant]
  3. CHLORPHENIRAMINE MALEATE [Concomitant]
  4. ACICLOVIR          (ACICLOVIR SODIUM) [Concomitant]
  5. ALLOPURINOL [Concomitant]
  6. AMLODIPINE [Concomitant]
  7. FUROSEMIDE (FUROSEMIDE SODIUM) [Concomitant]
  8. CIPROFLOXACINA (CIPROFLOXACIN) [Concomitant]
  9. METHYLPREDNISOLONE [Concomitant]
  10. TRANEXAMIC ACID (TRANEXAMIC ACID) [Concomitant]
  11. RANITIDINE HCL [Concomitant]

REACTIONS (15)
  - ASPARTATE AMINOTRANSFERASE INCREASED [None]
  - BLOOD ALBUMIN DECREASED [None]
  - BLOOD ALKALINE PHOSPHATASE INCREASED [None]
  - BLOOD BILIRUBIN INCREASED [None]
  - BLOOD GLUCOSE DECREASED [None]
  - BLOOD LACTATE DEHYDROGENASE INCREASED [None]
  - BLOOD POTASSIUM DECREASED [None]
  - BLOOD UREA INCREASED [None]
  - BLOOD URIC ACID DECREASED [None]
  - CARDIAC ARREST [None]
  - HAEMOGLOBIN DECREASED [None]
  - ISCHAEMIA [None]
  - PLATELET COUNT DECREASED [None]
  - PROTEIN TOTAL DECREASED [None]
  - RED BLOOD CELL COUNT DECREASED [None]
